FAERS Safety Report 10170842 (Version 2)
Quarter: 2014Q2

REPORT INFORMATION
  Report Type: Spontaneous
  Country: BR (occurrence: BR)
  Receive Date: 20140514
  Receipt Date: 20140528
  Transmission Date: 20141212
  Serious: Yes (Hospitalization)
  Sender: FDA-Public Use
  Company Number: BR-ROCHE-1400656

PATIENT
  Age: 82 Year
  Sex: Female

DRUGS (2)
  1. HERCEPTIN [Suspect]
     Indication: PRODUCT USED FOR UNKNOWN INDICATION
     Dosage: 624 MG IN 250 ML OF SALINE SOLUTION 0.9%
     Route: 041
     Dates: start: 20140428
  2. TAMOXIFEN [Concomitant]
     Route: 048
     Dates: start: 201402

REACTIONS (6)
  - Back pain [Recovered/Resolved]
  - Pain in extremity [Recovered/Resolved]
  - Dyspnoea [Recovered/Resolved]
  - Hypotension [Recovered/Resolved]
  - Abdominal pain upper [Recovered/Resolved]
  - Chest pain [Recovered/Resolved]
